FAERS Safety Report 4462999-7 (Version None)
Quarter: 2004Q3

REPORT INFORMATION
  Report Type: 
  Country: None (occurrence: None)
  Receive Date: 20040927
  Receipt Date: 20040917
  Transmission Date: 20050211
  Serious: Yes (Other)
  Sender: FDA-Public Use
  Company Number: 2004233891DK

PATIENT
  Age: 43 Year
  Sex: Female

DRUGS (1)
  1. CABERGOLINE [Suspect]
     Indication: PARKINSON'S DISEASE
     Dosage: 4MG/DAY; ORAL
     Route: 048
     Dates: start: 20011101, end: 20040801

REACTIONS (3)
  - CARDIAC FAILURE [None]
  - DYSPNOEA [None]
  - MITRAL VALVE STENOSIS [None]
